FAERS Safety Report 5367874-1 (Version None)
Quarter: 2007Q2

REPORT INFORMATION
  Report Type: 
  Country: None (occurrence: None)
  Receive Date: 20070622
  Receipt Date: 20070610
  Transmission Date: 20071010
  Serious: No
  Sender: FDA-Public Use
  Company Number: IL-ELI_LILLY_AND_COMPANY-IL200706002070

PATIENT
  Age: 52 Year
  Sex: Female

DRUGS (5)
  1. CYMBALTA [Suspect]
     Indication: DIABETIC NEUROPATHY
     Dosage: 30 MG, DAILY (1/D)
     Route: 048
     Dates: start: 20070101, end: 20070101
  2. LIPITOR [Concomitant]
     Dosage: 40 MG, DAILY (1/D)
     Route: 048
     Dates: end: 20070101
  3. BEZAFIBRAT [Concomitant]
     Dosage: 400 MG, DAILY (1/D)
     Route: 048
     Dates: end: 20070101
  4. TRITACE [Concomitant]
     Route: 048
  5. ASPIRIN [Concomitant]
     Route: 048

REACTIONS (3)
  - HEPATIC FUNCTION ABNORMAL [None]
  - MUSCLE SPASMS [None]
  - MUSCULAR WEAKNESS [None]
